FAERS Safety Report 23809855 (Version 2)
Quarter: 2025Q2

REPORT INFORMATION
  Report Type: Spontaneous
  Country: US (occurrence: US)
  Receive Date: 20240502
  Receipt Date: 20250514
  Transmission Date: 20250717
  Serious: No
  Sender: UCB
  Company Number: US-UCBSA-2023019152

PATIENT
  Sex: Female
  Weight: 108.84 kg

DRUGS (1)
  1. CIMZIA [Suspect]
     Active Substance: CERTOLIZUMAB PEGOL
     Indication: Rheumatoid arthritis
     Dosage: 200 MILLIGRAM, EV 2 WEEKS(QOW) IN THE ABDOMEN OR THIGH
     Route: 058
     Dates: start: 202302

REACTIONS (5)
  - Influenza [Recovered/Resolved]
  - SARS-CoV-2 test positive [Recovered/Resolved]
  - Accidental overdose [Unknown]
  - Product dose omission in error [Unknown]
  - Drug ineffective [Unknown]

NARRATIVE: CASE EVENT DATE: 20230101
